FAERS Safety Report 17103722 (Version 3)
Quarter: 2020Q2

REPORT INFORMATION
  Report Type: Spontaneous
  Country: US (occurrence: US)
  Receive Date: 20191203
  Receipt Date: 20200414
  Transmission Date: 20200713
  Serious: No
  Sender: FDA-Public Use
  Company Number: US-AMGEN-USASP2019199098

PATIENT
  Sex: Female

DRUGS (1)
  1. ENBREL [Suspect]
     Active Substance: ETANERCEPT
     Indication: LABORATORY TEST
     Dosage: 50 MILLIGRAM, QWK
     Route: 058

REACTIONS (2)
  - Off label use [Unknown]
  - Nasopharyngitis [Unknown]
